FAERS Safety Report 4773686-X (Version None)
Quarter: 2005Q3

REPORT INFORMATION
  Report Type: 
  Country: None (occurrence: None)
  Receive Date: 20050919
  Receipt Date: 20050905
  Transmission Date: 20060218
  Serious: Yes (Other)
  Sender: FDA-Public Use
  Company Number: ENTC2005-0218

PATIENT
  Age: 48 Year
  Sex: Female

DRUGS (7)
  1. STALEVO 100 [Suspect]
     Indication: PARKINSON'S DISEASE
     Dosage: 200 MG (100 MG, 2 IN 1 D)  ORAL : 200 MG (50 MG,4 IN 1 D) ORAL
     Route: 048
     Dates: start: 20050506, end: 20050602
  2. STALEVO 100 [Suspect]
     Indication: PARKINSON'S DISEASE
     Dosage: 200 MG (100 MG, 2 IN 1 D)  ORAL : 200 MG (50 MG,4 IN 1 D) ORAL
     Route: 048
     Dates: start: 20050603
  3. AMANTADINE HCL [Suspect]
     Indication: PARKINSON'S DISEASE
     Dosage: 1-1-0  ORAL  : 1-1-0 ORAL
     Route: 048
     Dates: end: 20050505
  4. AMANTADINE HCL [Suspect]
     Indication: PARKINSON'S DISEASE
     Dosage: 1-1-0  ORAL  : 1-1-0 ORAL
     Route: 048
     Dates: start: 20050506, end: 20050602
  5. SIFROL [Suspect]
     Indication: PARKINSON'S DISEASE
     Dosage: SEE IMAGE
     Route: 048
     Dates: end: 20050505
  6. SIFROL [Suspect]
     Indication: PARKINSON'S DISEASE
     Dosage: SEE IMAGE
     Route: 048
     Dates: start: 20050506, end: 20050602
  7. SIFROL [Suspect]
     Indication: PARKINSON'S DISEASE
     Dosage: SEE IMAGE
     Route: 048
     Dates: start: 20050603

REACTIONS (5)
  - DECREASED ACTIVITY [None]
  - MYALGIA [None]
  - NAUSEA [None]
  - OEDEMA PERIPHERAL [None]
  - WEIGHT INCREASED [None]
